FAERS Safety Report 13494986 (Version 2)
Quarter: 2017Q2

REPORT INFORMATION
  Report Type: Spontaneous
  Country: US (occurrence: US)
  Receive Date: 20170428
  Receipt Date: 20170505
  Transmission Date: 20170830
  Serious: No
  Sender: FDA-Public Use
  Company Number: US-HORIZON-PEN-0197-2017

PATIENT
  Sex: Male

DRUGS (1)
  1. PENNSAID [Suspect]
     Active Substance: DICLOFENAC SODIUM
     Indication: EPICONDYLITIS
     Dosage: 4 TIMES AS NEEDED

REACTIONS (6)
  - Rash [Unknown]
  - Off label use [Unknown]
  - Application site exfoliation [Unknown]
  - Wound secretion [Unknown]
  - Application site pain [Unknown]
  - Application site vesicles [Unknown]

NARRATIVE: CASE EVENT DATE: 2017
